FAERS Safety Report 6070001-9 (Version None)
Quarter: 2009Q1

REPORT INFORMATION
  Report Type: 
  Country: None (occurrence: None)
  Receive Date: 20090121
  Receipt Date: 20080313
  Transmission Date: 20090719
  Serious: Yes (Other)
  Sender: FDA-Public Use
  Company Number: HQWYE353024MAR05

PATIENT
  Age: 60 Year
  Sex: Female

DRUGS (6)
  1. PREMPRO [Suspect]
  2. CURRETAB [Suspect]
  3. ESTRATAB [Suspect]
  4. MEDROXYPROGESTERONE ACETATE [Suspect]
  5. PREMARIN [Suspect]
  6. PROVERA [Concomitant]

REACTIONS (1)
  - BREAST CANCER [None]
